FAERS Safety Report 9260573 (Version 3)
Quarter: 2013Q3

REPORT INFORMATION
  Report Type: Spontaneous
  Country: FR (occurrence: FR)
  Receive Date: 20130429
  Receipt Date: 20130822
  Transmission Date: 20140515
  Serious: Yes (Hospitalization, Other)
  Sender: FDA-Public Use
  Company Number: FR-UCBSA-084448

PATIENT
  Age: 11 Year
  Sex: Male

DRUGS (8)
  1. QUASYM LP [Suspect]
     Indication: DISTURBANCE IN ATTENTION
     Route: 048
     Dates: start: 201209, end: 20130510
  2. QUASYM LP [Suspect]
     Indication: PSYCHOMOTOR HYPERACTIVITY
     Route: 048
     Dates: start: 201209, end: 20130510
  3. QUASYM LP [Suspect]
     Indication: DISTURBANCE IN ATTENTION
     Dosage: NINE 20 MG AND NINE 10 MG : 270 MG TOTAL
     Route: 048
     Dates: start: 20130510, end: 20130510
  4. QUASYM LP [Suspect]
     Indication: PSYCHOMOTOR HYPERACTIVITY
     Dosage: NINE 20 MG AND NINE 10 MG : 270 MG TOTAL
     Route: 048
     Dates: start: 20130510, end: 20130510
  5. CONCERTA [Concomitant]
     Dates: end: 201209
  6. AERIUS [Concomitant]
     Dosage: UNKNOWN DOSE
  7. SINGULAIR [Concomitant]
     Dosage: UNKNOWN DOSE
  8. SERETIDE [Concomitant]
     Dosage: UNKNOWN DOSE

REACTIONS (5)
  - Paranoia [Not Recovered/Not Resolved]
  - Suicidal ideation [Recovered/Resolved]
  - Intentional self-injury [Not Recovered/Not Resolved]
  - Poisoning deliberate [Recovered/Resolved]
  - Overdose [Unknown]
